FAERS Safety Report 7931012-9 (Version None)
Quarter: 2011Q4

REPORT INFORMATION
  Report Type: 
  Country: None (occurrence: None)
  Receive Date: 20111121
  Receipt Date: 20111117
  Transmission Date: 20120403
  Serious: Yes (Death)
  Sender: FDA-Public Use
  Company Number: DE-B.I. PHARMACEUTICALS,INC./RIDGEFIELD-2011-DE-05810DE

PATIENT
  Sex: Male
  Weight: 80 kg

DRUGS (13)
  1. PRADAXA [Suspect]
     Indication: ATRIAL FIBRILLATION
     Dosage: 300 MG
     Dates: start: 20110916, end: 20111012
  2. BETA-ACETYL-DIGOXIN 0,2 [Concomitant]
     Dosage: 1 ANZ
  3. TORASEMID 10 [Concomitant]
     Dosage: 1 ANZ
  4. CA2 [Concomitant]
  5. BISOPROLOL FUMARATE [Concomitant]
     Dosage: 2 ANZ
  6. RAMIPRIL 5 [Concomitant]
     Dosage: 1 ANZ
  7. RAMIPRIL PLUS 5/25 [Concomitant]
     Dosage: 1 ANZ
  8. ALENDRONAT 70 [Concomitant]
     Dosage: 1X WEEKLY
  9. VITAMIN D [Concomitant]
  10. PRAVASTATIN SODIUM [Concomitant]
     Dosage: 1 ANZ
  11. ALLOPURINOL [Concomitant]
     Dosage: 1 ANZ
  12. L-THYROXIN 50 [Concomitant]
     Dosage: 1 ANZ
  13. TILIDIN 50 [Concomitant]
     Dosage: 2 ANZ

REACTIONS (8)
  - DEATH [None]
  - GASTRIC HAEMORRHAGE [None]
  - INTESTINAL HAEMORRHAGE [None]
  - FALL [None]
  - SKIN HAEMORRHAGE [None]
  - HAEMATOMA [None]
  - MELAENA [None]
  - HAEMATEMESIS [None]
